FAERS Safety Report 23744239 (Version 1)
Quarter: 2024Q2

REPORT INFORMATION
  Report Type: Spontaneous
  Country: US (occurrence: US)
  Receive Date: 20240415
  Receipt Date: 20240415
  Transmission Date: 20240716
  Serious: Yes (Other)
  Sender: FDA-Public Use
  Company Number: US-SUN PHARMACEUTICAL INDUSTRIES LTD-2024R1-441128

PATIENT
  Age: 37 Year
  Sex: Female

DRUGS (3)
  1. METHYLPREDNISOLONE [Suspect]
     Active Substance: METHYLPREDNISOLONE
     Indication: COVID-19
     Dosage: 1 MILLIGRAM/KILOGRAM, BID
     Route: 065
  2. DEXAMETHASONE [Suspect]
     Active Substance: DEXAMETHASONE
     Indication: COVID-19
     Dosage: 6 MILLIGRAM, DAILY
     Route: 065
  3. HYDROXYUREA [Suspect]
     Active Substance: HYDROXYUREA
     Indication: COVID-19
     Dosage: UNK
     Route: 065

REACTIONS (2)
  - Vision blurred [Unknown]
  - Retinal haemorrhage [Unknown]
